FAERS Safety Report 15001488 (Version 2)
Quarter: 2018Q3

REPORT INFORMATION
  Report Type: Report from Study
  Country: US (occurrence: US)
  Receive Date: 20180612
  Receipt Date: 20180726
  Transmission Date: 20181010
  Serious: Yes (Life-Threatening, Hospitalization, Other)
  Sender: FDA-Public Use
  Company Number: US-GILEAD-2018-0341307

PATIENT
  Age: 8 Year
  Sex: Female
  Weight: 41 kg

DRUGS (4)
  1. SILDENAFIL. [Concomitant]
     Active Substance: SILDENAFIL
  2. AMBRISENTAN [Suspect]
     Active Substance: AMBRISENTAN
     Indication: PULMONARY HYPERTENSION
     Dosage: 5 MG, UNK
     Route: 065
     Dates: start: 20171023
  3. AMBRISENTAN [Suspect]
     Active Substance: AMBRISENTAN
     Dosage: 10 MG, QD
     Route: 065
  4. AMBRISENTAN [Suspect]
     Active Substance: AMBRISENTAN
     Indication: TETRALOGY OF FALLOT REPAIR
     Dosage: 5 MG, QD
     Route: 065

REACTIONS (4)
  - Dyspnoea [Unknown]
  - Atrial flutter [Recovered/Resolved]
  - Cough [Unknown]
  - Off label use [Not Recovered/Not Resolved]
